FAERS Safety Report 5474871-4 (Version None)
Quarter: 2007Q4

REPORT INFORMATION
  Report Type: 
  Country: None (occurrence: None)
  Receive Date: 20071002
  Receipt Date: 20070920
  Transmission Date: 20080405
  Serious: Yes (Hospitalization)
  Sender: FDA-Public Use
  Company Number: GB-ROCHE-505746

PATIENT
  Age: 68 Year
  Sex: Female
  Weight: 85 kg

DRUGS (13)
  1. XENICAL [Suspect]
     Indication: OBESITY
     Route: 048
     Dates: start: 20070129, end: 20070416
  2. OMEPRAZOLE [Concomitant]
  3. FRUSEMIDE [Concomitant]
  4. LEVOTHYROXINE SODIUM [Concomitant]
  5. ARYTHMOL [Concomitant]
  6. RAMIPRIL [Concomitant]
  7. DOSULEPIN [Concomitant]
  8. ASPIRIN [Concomitant]
  9. STEMEX [Concomitant]
  10. CINNARIZINE [Concomitant]
  11. CHLORDIAZEPOXIDE [Concomitant]
  12. ATORVASTATIN CALCIUM [Concomitant]
  13. DIPYRIDAMOLE [Concomitant]

REACTIONS (1)
  - CEREBRAL ISCHAEMIA [None]
